FAERS Safety Report 4568254-9 (Version None)
Quarter: 2005Q1

REPORT INFORMATION
  Report Type: 
  Country: None (occurrence: None)
  Receive Date: 20050131
  Receipt Date: 20050124
  Transmission Date: 20050727
  Serious: Yes (Death, Hospitalization)
  Sender: FDA-Public Use
  Company Number: 2005CG00115

PATIENT
  Age: 62 Year
  Sex: Male
  Weight: 56 kg

DRUGS (11)
  1. OMEPRAZOLE [Suspect]
     Indication: PNEUMONIA KLEBSIELLA
     Dosage: 40 MG QD PO
     Route: 048
     Dates: start: 20041021
  2. TRAMADOL HCL [Suspect]
     Dosage: 150 MG QD PO
     Route: 048
     Dates: start: 20041021
  3. CORTANCYL [Suspect]
     Dosage: 5 MG QD PO
     Route: 048
     Dates: start: 20041021
  4. ZYRTEC [Suspect]
     Dosage: 1 DF QD PO
     Route: 048
     Dates: start: 20041021
  5. PROGRAF [Suspect]
     Dosage: 2 MG QD PO
     Route: 048
     Dates: start: 20041021
  6. TIGECYCLINE [Suspect]
     Indication: NOSOCOMIAL INFECTION
     Dosage: 50 MG BID IV
     Route: 042
     Dates: start: 20041203, end: 20041208
  7. LOVENOX [Suspect]
     Dates: start: 20041021
  8. PRIMPERAN INJ [Suspect]
     Dates: start: 20041021
  9. ATARAX [Suspect]
     Dates: start: 20041021
  10. SECTRAL [Suspect]
     Dates: start: 20041021
  11. AMLODIPINE BESYLATE [Suspect]
     Dates: start: 20041021

REACTIONS (20)
  - ABNORMAL SENSATION IN EYE [None]
  - ANGIOPATHY [None]
  - CHOLESTASIS [None]
  - COMA [None]
  - CONDITION AGGRAVATED [None]
  - CONFUSIONAL STATE [None]
  - CONVULSION [None]
  - DRUG TOXICITY [None]
  - EXTRAPYRAMIDAL DISORDER [None]
  - HEPATIC FUNCTION ABNORMAL [None]
  - HEPATITIS [None]
  - METABOLIC ENCEPHALOPATHY [None]
  - NOSOCOMIAL INFECTION [None]
  - PHOTOPSIA [None]
  - PNEUMONIA KLEBSIELLA [None]
  - RENAL FAILURE CHRONIC [None]
  - RETINOPATHY HYPERTENSIVE [None]
  - SENSORY DISTURBANCE [None]
  - SEPSIS [None]
  - VISUAL DISTURBANCE [None]
